FAERS Safety Report 7214183-1 (Version None)
Quarter: 2011Q1

REPORT INFORMATION
  Report Type: 
  Country: None (occurrence: None)
  Receive Date: 20110107
  Receipt Date: 20101230
  Transmission Date: 20110831
  Serious: Yes (Other)
  Sender: FDA-Public Use
  Company Number: US-ABBOTT-10P-163-0693485-00

PATIENT
  Sex: Female
  Weight: 71.732 kg

DRUGS (19)
  1. SPIRONOLACTONE [Concomitant]
     Indication: SWELLING
  2. BACLOFEN [Concomitant]
     Indication: MYOSITIS
  3. SERTRALINE [Concomitant]
     Indication: DEPRESSION
  4. SIMVASTATIN [Concomitant]
     Indication: BLOOD CHOLESTEROL INCREASED
  5. LEVOTHYROXINE [Concomitant]
     Indication: HYPOTHYROIDISM
  6. PROVENTIL [Concomitant]
     Indication: ASTHMA
  7. FUROSEMIDE [Concomitant]
     Indication: SWELLING
  8. FOSAMAX [Concomitant]
     Indication: OSTEOPOROSIS
     Dates: start: 20060101
  9. HUMIRA [Suspect]
     Indication: RHEUMATOID ARTHRITIS
     Dates: start: 20100702, end: 20101020
  10. DILAUDID [Concomitant]
     Indication: BACK INJURY
     Dates: start: 20000101
  11. FOLIC ACID [Concomitant]
     Indication: VITAMIN SUPPLEMENTATION
  12. ENBREL [Concomitant]
     Indication: RHEUMATOID ARTHRITIS
     Dates: start: 20101020
  13. HYDROCODEINE [Concomitant]
     Indication: PAIN
  14. BACLOFEN [Concomitant]
     Indication: PAIN
  15. ADVAIR [Concomitant]
     Indication: ASTHMA
  16. PILOCARPINE [Concomitant]
     Indication: DRY MOUTH
  17. GABAPENTIN [Concomitant]
     Indication: NERVE INJURY
  18. KLOR-CON [Concomitant]
     Indication: MINERAL SUPPLEMENTATION
  19. MAGNESIUM [Concomitant]
     Indication: MINERAL SUPPLEMENTATION

REACTIONS (9)
  - GAIT DISTURBANCE [None]
  - MUSCULOSKELETAL DISORDER [None]
  - RHEUMATOID ARTHRITIS [None]
  - MULTIPLE SCLEROSIS [None]
  - DRUG INEFFECTIVE [None]
  - PAIN [None]
  - ARTHRALGIA [None]
  - NEURITIS [None]
  - MYOSITIS [None]
